FAERS Safety Report 15961532 (Version 2)
Quarter: 2019Q1

REPORT INFORMATION
  Report Type: Spontaneous
  Country: US (occurrence: US)
  Receive Date: 20190214
  Receipt Date: 20190220
  Transmission Date: 20190417
  Serious: Yes (Hospitalization, Other)
  Sender: FDA-Public Use
  Company Number: US-APOTEX-2019AP007675

PATIENT
  Age: 26 Year
  Sex: Female

DRUGS (12)
  1. FENTANYL. [Suspect]
     Active Substance: FENTANYL
     Indication: PRODUCT USED FOR UNKNOWN INDICATION
     Route: 065
  2. QUETIAPINE. [Suspect]
     Active Substance: QUETIAPINE
     Indication: INTENTIONAL OVERDOSE
     Dosage: LARGE QUANTITY
     Route: 048
  3. VITAMINS NOS [Suspect]
     Active Substance: VITAMINS
     Indication: PRENATAL CARE
     Dosage: UNK
     Route: 048
  4. BUPRENORPHINE                      /00444002/ [Suspect]
     Active Substance: BUPRENORPHINE HYDROCHLORIDE
     Indication: PRODUCT USED FOR UNKNOWN INDICATION
     Route: 065
  5. VITAMINS NOS [Suspect]
     Active Substance: VITAMINS
     Indication: INTENTIONAL OVERDOSE
  6. ASPIRIN                            /00002701/ [Suspect]
     Active Substance: ASPIRIN
     Indication: INTENTIONAL OVERDOSE
     Dosage: LARGE QUANTITY
     Route: 048
  7. ACETYLSALICYLIC ACID [Suspect]
     Active Substance: ASPIRIN
     Indication: INTENTIONAL OVERDOSE
     Route: 065
  8. METHAMPHETAMINE                    /00069101/ [Suspect]
     Active Substance: METHAMPHETAMINE
     Indication: PRODUCT USED FOR UNKNOWN INDICATION
     Route: 065
  9. AMPHETAMINE [Suspect]
     Active Substance: AMPHETAMINE
     Indication: PRODUCT USED FOR UNKNOWN INDICATION
     Route: 065
  10. ACETYLSALICYLIC ACID [Suspect]
     Active Substance: ASPIRIN
     Indication: SUICIDE ATTEMPT
  11. ACETAMINOPHEN. [Suspect]
     Active Substance: ACETAMINOPHEN
     Indication: INTENTIONAL OVERDOSE
     Route: 065
  12. TYLENOL [Suspect]
     Active Substance: ACETAMINOPHEN
     Indication: INTENTIONAL OVERDOSE
     Dosage: LARGE QUANTITY
     Route: 048

REACTIONS (5)
  - Suicide attempt [Unknown]
  - Intentional overdose [Recovered/Resolved]
  - Exposure during pregnancy [Unknown]
  - Loss of consciousness [Unknown]
  - Respiratory failure [Unknown]
